FAERS Safety Report 6160680-X (Version None)
Quarter: 2009Q2

REPORT INFORMATION
  Report Type: 
  Country: None (occurrence: None)
  Receive Date: 20090420
  Receipt Date: 20090408
  Transmission Date: 20091009
  Serious: Yes (Other)
  Sender: FDA-Public Use
  Company Number: US-PFIZER INC-2008080744

PATIENT
  Sex: Female

DRUGS (5)
  1. LYRICA [Suspect]
  2. NEURONTIN [Suspect]
     Indication: PAIN
  3. MOTRIN [Concomitant]
  4. CALCIUM [Concomitant]
  5. TYLENOL [Concomitant]

REACTIONS (2)
  - ONYCHOMADESIS [None]
  - PURPURA [None]
